FAERS Safety Report 19427523 (Version 1)
Quarter: 2021Q2

REPORT INFORMATION
  Report Type: Report from Study
  Country: US (occurrence: US)
  Receive Date: 20210617
  Receipt Date: 20210617
  Transmission Date: 20210717
  Serious: Yes (Hospitalization)
  Sender: FDA-Public Use
  Company Number: US-ROCHE-2848824

PATIENT
  Age: 62 Year
  Sex: Female
  Weight: 79.1 kg

DRUGS (7)
  1. COBIMETINIB. [Suspect]
     Active Substance: COBIMETINIB
     Indication: OVARIAN CANCER RECURRENT
     Dosage: DOSE LAST STUDY DRUG ADMIN PRIOR AE IS 40 MG 10?JUN?2021
     Route: 048
     Dates: start: 20201230
  2. NIRAPARIB [Suspect]
     Active Substance: NIRAPARIB
     Indication: OVARIAN CANCER RECURRENT
     Dosage: DOSE LAST STUDY DRUG ADMIN PRIOR AE WAS 200 MG 10?JUN?2021
     Route: 048
     Dates: start: 20201230
  3. ATEZOLIZUMAB. [Suspect]
     Active Substance: ATEZOLIZUMAB
     Indication: OVARIAN CANCER RECURRENT
     Dosage: DOSE LAST STUDY DRUG ADMIN PRIOR AE WAS 840 MG 23?APR?2021
     Route: 042
     Dates: start: 20201230
  4. BENADRYL [Concomitant]
     Active Substance: DIPHENHYDRAMINE HYDROCHLORIDE
     Indication: DERMATITIS ACNEIFORM
     Route: 048
     Dates: start: 20210109
  5. MIRALAX [Concomitant]
     Active Substance: POLYETHYLENE GLYCOL 3350
     Indication: CONSTIPATION
     Route: 048
     Dates: start: 20210208
  6. MACROBID [Concomitant]
     Active Substance: NITROFURANTOIN\NITROFURANTOIN MONOHYDRATE
     Indication: URINARY TRACT INFECTION
     Route: 048
     Dates: start: 20210210
  7. IMITREX [Concomitant]
     Active Substance: SUMATRIPTAN SUCCINATE
     Indication: HEADACHE
     Route: 048
     Dates: start: 20210205

REACTIONS (4)
  - Fatigue [Not Recovered/Not Resolved]
  - Hyperglycaemia [Not Recovered/Not Resolved]
  - Asthenia [Not Recovered/Not Resolved]
  - Blood creatine phosphokinase increased [Not Recovered/Not Resolved]

NARRATIVE: CASE EVENT DATE: 20210604
